FAERS Safety Report 5107911-2 (Version None)
Quarter: 2006Q3

REPORT INFORMATION
  Report Type: 
  Country: None (occurrence: None)
  Receive Date: 20060914
  Receipt Date: 20060828
  Transmission Date: 20061208
  Serious: Yes (Hospitalization)
  Sender: FDA-Public Use
  Company Number: 2006SP000292

PATIENT
  Age: 71 Year
  Sex: Male

DRUGS (2)
  1. PEG-INTRON [Suspect]
     Indication: HEPATITIS C
     Dosage: 50 MCG; QW; SC
     Route: 058
     Dates: start: 20060701
  2. REBETOL [Suspect]
     Indication: HEPATITIS C
     Dosage: 400 MG; QD; PO
     Route: 048
     Dates: start: 20060701

REACTIONS (1)
  - JAUNDICE [None]
